FAERS Safety Report 11631124 (Version 1)
Quarter: 2015Q4

REPORT INFORMATION
  Report Type: Spontaneous
  Country: US (occurrence: US)
  Receive Date: 20151014
  Receipt Date: 20151014
  Transmission Date: 20160304
  Serious: Yes (Disabling, Congenital Anomaly)
  Sender: FDA-Public Use
  Company Number: US-ABBVIE-15P-163-1478103-00

PATIENT

DRUGS (1)
  1. DEPAKOTE [Suspect]
     Active Substance: DIVALPROEX SODIUM
     Indication: MATERNAL EXPOSURE TIMING UNSPECIFIED
     Route: 064

REACTIONS (28)
  - Cognitive disorder [Unknown]
  - Atrial septal defect [Unknown]
  - Ventricular septal defect [Unknown]
  - Emotional disorder [Unknown]
  - Pain [Unknown]
  - Developmental delay [Unknown]
  - Dysmorphism [Unknown]
  - Social problem [Unknown]
  - Impaired self-care [Unknown]
  - Congenital foot malformation [Unknown]
  - Congenital hearing disorder [Unknown]
  - Injury [Unknown]
  - Tracheomalacia [Unknown]
  - Fine motor delay [Unknown]
  - Foetal anticonvulsant syndrome [Unknown]
  - Foetal exposure during pregnancy [Unknown]
  - Heart disease congenital [Unknown]
  - Congenital hand malformation [Unknown]
  - Sensory disturbance [Unknown]
  - Speech disorder [Unknown]
  - Speech disorder developmental [Unknown]
  - Anhedonia [Unknown]
  - Economic problem [Unknown]
  - Gross motor delay [Unknown]
  - Physical disability [Unknown]
  - Congenital cardiovascular anomaly [Unknown]
  - Abnormal behaviour [Unknown]
  - Congenital neurological disorder [Unknown]
